FAERS Safety Report 6238465-5 (Version None)
Quarter: 2009Q2

REPORT INFORMATION
  Report Type: 
  Country: None (occurrence: None)
  Receive Date: 20090622
  Receipt Date: 20090610
  Transmission Date: 20091009
  Serious: Yes (Other)
  Sender: FDA-Public Use
  Company Number: US-PFIZER INC-2005115726

PATIENT
  Sex: Female
  Weight: 59 kg

DRUGS (15)
  1. PROVERA [Suspect]
     Indication: HORMONE REPLACEMENT THERAPY
     Dosage: 10 MG, UNK
     Route: 048
     Dates: start: 19921112, end: 19931021
  2. PREMARIN [Suspect]
     Indication: HORMONE REPLACEMENT THERAPY
     Dosage: 0.625 MG, UNK
     Dates: start: 19900101, end: 20030721
  3. PREMARIN [Suspect]
     Dosage: 0.9 MG, UNK
     Dates: start: 19900101, end: 20030721
  4. PREMARIN [Suspect]
     Dosage: 1.25 MG, UNK
     Dates: start: 19900101, end: 20030721
  5. AYGESTIN [Suspect]
     Indication: HORMONE REPLACEMENT THERAPY
     Dosage: 2.5MG TO 5MG
     Dates: start: 19900101, end: 20030721
  6. ACETYLSALICYLIC ACID [Concomitant]
     Indication: CARDIOMYOPATHY
     Dosage: UNK
     Dates: start: 19930101
  7. LANOXIN [Concomitant]
     Indication: CARDIOMYOPATHY
     Dosage: 0.25 MG, 1X/DAY
     Dates: start: 19940101
  8. DEMADEX [Concomitant]
     Indication: CARDIOMYOPATHY
     Dosage: 20 MG, 1X/DAY
     Dates: start: 19940101
  9. DEMADEX [Concomitant]
     Indication: HYPERTENSION
  10. ALDACTONE [Concomitant]
     Indication: CARDIOMYOPATHY
     Dosage: 25 MG, 1X/DAY
     Dates: start: 19940101
  11. ACCUPRIL [Concomitant]
     Indication: CARDIOMYOPATHY
     Dosage: 5 MG, 1X/DAY
     Dates: start: 19940101
  12. ACCUPRIL [Concomitant]
     Indication: HYPERTENSION
  13. VASOTEC [Concomitant]
     Indication: HYPERTENSION
     Dosage: 1.25 MG, 1X/DAY
     Dates: start: 19940101, end: 20030721
  14. COREG [Concomitant]
     Indication: CARDIOMYOPATHY
     Dosage: 25 MG, UNK
     Dates: start: 19940101
  15. COREG [Concomitant]
     Indication: HYPERTENSION

REACTIONS (1)
  - BREAST CANCER FEMALE [None]
